FAERS Safety Report 4289740-5 (Version None)
Quarter: 2004Q1

REPORT INFORMATION
  Report Type: 
  Country: None (occurrence: None)
  Receive Date: 20040209
  Receipt Date: 20040126
  Transmission Date: 20041129
  Serious: Yes (Death, Hospitalization)
  Sender: FDA-Public Use
  Company Number: LBIDO00204000210

PATIENT
  Age: 65 Year
  Sex: Female

DRUGS (4)
  1. LITHIUM CARBONATE [Suspect]
     Indication: ILL-DEFINED DISORDER
     Dosage: 600 MG DAILY PO
     Route: 048
  2. NIFEDIPINE [Concomitant]
  3. ATENOLOL [Concomitant]
  4. NITROGLYCERIN [Concomitant]

REACTIONS (29)
  - ATRIAL FIBRILLATION [None]
  - ATRIOVENTRICULAR BLOCK [None]
  - BLOOD CREATININE INCREASED [None]
  - BLOOD UREA INCREASED [None]
  - BOWEL SOUNDS ABNORMAL [None]
  - COMA [None]
  - DEHYDRATION [None]
  - DIARRHOEA [None]
  - DISORIENTATION [None]
  - DISSEMINATED INTRAVASCULAR COAGULATION [None]
  - DRUG LEVEL ABOVE THERAPEUTIC [None]
  - ELECTROCARDIOGRAM ST SEGMENT DEPRESSION [None]
  - ELECTROCARDIOGRAM T WAVE INVERSION [None]
  - ELECTROMECHANICAL DISSOCIATION [None]
  - HAEMODIALYSIS [None]
  - HYPOREFLEXIA [None]
  - HYPOTENSION [None]
  - LETHARGY [None]
  - NAUSEA [None]
  - OBESITY [None]
  - OXYGEN SATURATION DECREASED [None]
  - RALES [None]
  - RETCHING [None]
  - RHABDOMYOLYSIS [None]
  - SPEECH DISORDER [None]
  - TOXICOLOGIC TEST ABNORMAL [None]
  - URINE OUTPUT DECREASED [None]
  - VENTRICULAR FIBRILLATION [None]
  - VOMITING [None]
